FAERS Safety Report 7506923-9 (Version None)
Quarter: 2011Q2

REPORT INFORMATION
  Report Type: 
  Country: None (occurrence: None)
  Receive Date: 20110415
  Receipt Date: 20101022
  Transmission Date: 20111010
  Serious: Yes (Hospitalization)
  Sender: FDA-Public Use
  Company Number: 10-001521

PATIENT
  Age: 22 Year
  Sex: Female
  Weight: 74.8 kg

DRUGS (1)
  1. LOESTRIN 24 FE [Suspect]
     Indication: OVARIAN CYST RUPTURED
     Dosage: 20/1000 UG, QD, ORAL
     Route: 048
     Dates: start: 20100401

REACTIONS (5)
  - PANCREATITIS [None]
  - NAUSEA [None]
  - HEADACHE [None]
  - URINARY TRACT INFECTION [None]
  - DIARRHOEA [None]
